FAERS Safety Report 22279763 (Version 2)
Quarter: 2023Q4

REPORT INFORMATION
  Report Type: Spontaneous
  Country: JP (occurrence: JP)
  Receive Date: 20230503
  Receipt Date: 20231228
  Transmission Date: 20240109
  Serious: Yes (Death, Hospitalization, Other)
  Sender: FDA-Public Use
  Company Number: JP-MSD-M2023-17054

PATIENT
  Sex: Male
  Weight: 68 kg

DRUGS (4)
  1. KEYTRUDA [Suspect]
     Active Substance: PEMBROLIZUMAB
     Indication: Lung adenocarcinoma stage IV
     Dosage: 200 MILLIGRAM, Q3W
     Route: 041
     Dates: start: 20220622, end: 20220622
  2. TRELEGY ELLIPTA [Concomitant]
     Active Substance: FLUTICASONE FUROATE\UMECLIDINIUM BROMIDE\VILANTEROL TRIFENATATE
     Indication: Asthma
     Dosage: 1 INHALATION, QD
     Dates: start: 20210305, end: 20220723
  3. PRAMIPEXOLE [Concomitant]
     Active Substance: PRAMIPEXOLE
     Indication: Myasthenia gravis
     Dosage: 0.25 MILLIGRAM, BID
     Route: 048
     Dates: start: 2017, end: 20220723
  4. TEGRETOL [Concomitant]
     Active Substance: CARBAMAZEPINE
     Indication: Myasthenia gravis
     Dosage: 200 MILLIGRAM, QD
     Route: 048
     Dates: start: 2017, end: 20220723

REACTIONS (15)
  - Immune-mediated myocarditis [Fatal]
  - Immune-mediated myositis [Fatal]
  - Respiratory failure [Fatal]
  - Circulatory collapse [Fatal]
  - Malignant pleural effusion [Fatal]
  - Respiratory failure [Fatal]
  - Malignant neoplasm progression [Unknown]
  - Aortic arteriosclerosis [Unknown]
  - Arteriosclerosis coronary artery [Unknown]
  - Renal artery arteriosclerosis [Unknown]
  - Immune-mediated hepatitis [Unknown]
  - Gastric leiomyoma [Unknown]
  - Colorectal adenoma [Unknown]
  - Pleural calcification [Unknown]
  - Cholelithiasis [Unknown]

NARRATIVE: CASE EVENT DATE: 20220101
